FAERS Safety Report 19886047 (Version 1)
Quarter: 2021Q3

REPORT INFORMATION
  Report Type: Spontaneous
  Country: CN (occurrence: CN)
  Receive Date: 20210927
  Receipt Date: 20210927
  Transmission Date: 20211014
  Serious: Yes (Other)
  Sender: FDA-Public Use
  Company Number: CN-PFIZER INC-202101206738

PATIENT
  Age: 69 Year
  Sex: Male

DRUGS (3)
  1. BEI NENG [MEROPENEM] [Suspect]
     Active Substance: MEROPENEM
     Indication: CEREBRAL HAEMORRHAGE
     Dosage: 1000 MG, 3X/DAY
     Route: 041
     Dates: start: 20210804, end: 20210812
  2. FLUCYTOSINE. [Suspect]
     Active Substance: FLUCYTOSINE
     Indication: URINARY TRACT INFECTION
     Dosage: 1 G, 4X/DAY
     Route: 045
     Dates: start: 20210804, end: 20210814
  3. ZYVOX [Suspect]
     Active Substance: LINEZOLID
     Indication: CEREBRAL HAEMORRHAGE
     Dosage: 0.6 G, 2X/DAY
     Route: 041
     Dates: start: 20210803, end: 20210811

REACTIONS (2)
  - Liver injury [Recovering/Resolving]
  - Off label use [Unknown]

NARRATIVE: CASE EVENT DATE: 20210803
